FAERS Safety Report 11072447 (Version 1)
Quarter: 2015Q2

REPORT INFORMATION
  Report Type: Spontaneous
  Country: US (occurrence: None)
  Receive Date: 20150427
  Receipt Date: 20150427
  Transmission Date: 20150821
  Serious: Yes (Disabling)
  Sender: FDA-Public Use
  Company Number: None

PATIENT
  Age: 75 Year
  Sex: Female
  Weight: 58.97 kg

DRUGS (33)
  1. NAMENDA [Suspect]
     Active Substance: MEMANTINE HYDROCHLORIDE
     Indication: DEMENTIA ALZHEIMER^S TYPE
     Route: 048
     Dates: start: 20150323, end: 20150425
  2. ALBUTEROL/IPRATROP (COMBIVENT) [Concomitant]
  3. PRAMIPEXOLE DI-HCL (MIRAPEX) [Concomitant]
  4. PROBIOTIC [Concomitant]
     Active Substance: PROBIOTICS NOS
  5. LEVOTHYROXINE SODIUM (SYNTHYROID) [Concomitant]
  6. LINZESS [Concomitant]
     Active Substance: LINACLOTIDE
  7. CLONAZEPAM. [Concomitant]
     Active Substance: CLONAZEPAM
  8. ALPRAZOLAM. [Concomitant]
     Active Substance: ALPRAZOLAM
  9. AMLODIPINE BESYLATE. [Concomitant]
     Active Substance: AMLODIPINE BESYLATE
  10. CHLONIDINE HCL [Concomitant]
  11. ATENOLOL. [Concomitant]
     Active Substance: ATENOLOL
  12. RENALCAPS [Concomitant]
  13. VITAMIN D [Concomitant]
     Active Substance: CHOLECALCIFEROL
  14. COMBIVENT [Concomitant]
     Active Substance: ALBUTEROL SULFATE\IPRATROPIUM BROMIDE
  15. CLONIDINE HCL [Concomitant]
     Active Substance: CLONIDINE HYDROCHLORIDE
  16. RENVELA [Concomitant]
     Active Substance: SEVELAMER CARBONATE
  17. SODIUM BICARBONATE. [Concomitant]
     Active Substance: SODIUM BICARBONATE
  18. THIAMIN HCL [Concomitant]
  19. THERAGRAM M PREMIERE 50 PLUS [Concomitant]
  20. FUROSEMIDE. [Concomitant]
     Active Substance: FUROSEMIDE
  21. NOONRENVELA [Concomitant]
  22. SIMVASTATIN. [Concomitant]
     Active Substance: SIMVASTATIN
  23. FOLIC ACID. [Concomitant]
     Active Substance: FOLIC ACID
  24. LAXATIVE [Concomitant]
     Active Substance: UNSPECIFIED INGREDIENT
  25. FENTANYL. [Concomitant]
     Active Substance: FENTANYL
  26. DOXAZOSIN MESYLATE. [Concomitant]
     Active Substance: DOXAZOSIN MESYLATE
  27. PARICALCITOL. [Concomitant]
     Active Substance: PARICALCITOL
  28. MELATONIN [Concomitant]
     Active Substance: MELATONIN
  29. DURAGESIC [Concomitant]
     Active Substance: FENTANYL
  30. NEXIUM [Concomitant]
     Active Substance: ESOMEPRAZOLE MAGNESIUM
  31. ROPINIROLE HCL [Concomitant]
     Active Substance: ROPINIROLE HYDROCHLORIDE
  32. OXYCODONE HCL [Concomitant]
     Active Substance: OXYCODONE HYDROCHLORIDE
  33. BIOTIN [Concomitant]
     Active Substance: BIOTIN

REACTIONS (5)
  - Constipation [None]
  - Limb injury [None]
  - Nail avulsion [None]
  - Amnesia [None]
  - Dizziness [None]

NARRATIVE: CASE EVENT DATE: 20150410
